FAERS Safety Report 7980113-8 (Version None)
Quarter: 2011Q4

REPORT INFORMATION
  Report Type: 
  Country: None (occurrence: None)
  Receive Date: 20111214
  Receipt Date: 20111205
  Transmission Date: 20120403
  Serious: Yes (Hospitalization, Disabling, Other)
  Sender: FDA-Public Use
  Company Number: US-MERCK-1001USA03816

PATIENT
  Age: 43 Year
  Sex: Female
  Weight: 71 kg

DRUGS (3)
  1. FOSAMAX [Suspect]
     Indication: OSTEOPOROSIS
     Route: 048
  2. ZOMETA [Suspect]
     Indication: BREAST CANCER
     Route: 042
     Dates: start: 20051201, end: 20080401
  3. ANTINEOPLASTIC (UNSPECIFIED) [Suspect]
     Indication: BREAST CANCER
     Route: 065
     Dates: start: 20030101

REACTIONS (100)
  - LEUKOCYTOSIS [None]
  - DEGENERATION OF UTERINE LEIOMYOMA [None]
  - HEPATIC ENZYME INCREASED [None]
  - ACUTE MYOCARDIAL INFARCTION [None]
  - UTERINE DISORDER [None]
  - BRONCHOPNEUMONIA [None]
  - TOOTH EXTRACTION [None]
  - OEDEMA PERIPHERAL [None]
  - OSTEITIS [None]
  - PERIPHERAL ARTERY ANEURYSM [None]
  - GASTROOESOPHAGEAL REFLUX DISEASE [None]
  - CONTUSION [None]
  - ALOPECIA [None]
  - APPENDIX DISORDER [None]
  - NERVE INJURY [None]
  - RENAL FAILURE CHRONIC [None]
  - BREAST CANCER FEMALE [None]
  - ANXIETY [None]
  - BODY HEIGHT DECREASED [None]
  - MYALGIA [None]
  - SPINAL OSTEOARTHRITIS [None]
  - SINUSITIS [None]
  - HYPOAESTHESIA [None]
  - AMNESIA [None]
  - MAJOR DEPRESSION [None]
  - DEPRESSION [None]
  - ARTHRITIS [None]
  - ADRENAL DISORDER [None]
  - OSTEONECROSIS OF JAW [None]
  - LEFT VENTRICULAR DYSFUNCTION [None]
  - PELVIC PAIN [None]
  - OSTEOMYELITIS [None]
  - TRANSAMINASES INCREASED [None]
  - DYSPNOEA [None]
  - SINUS CONGESTION [None]
  - ORAL TORUS [None]
  - INSOMNIA [None]
  - DYSPHONIA [None]
  - AORTIC ANEURYSM [None]
  - THROMBOCYTOPENIA [None]
  - BLOOD POTASSIUM INCREASED [None]
  - ABDOMINAL HERNIA [None]
  - BACK PAIN [None]
  - NEURALGIA [None]
  - NERVOUSNESS [None]
  - ARTHRALGIA [None]
  - MUSCULAR WEAKNESS [None]
  - VERTEBRAL FORAMINAL STENOSIS [None]
  - IMPAIRED HEALING [None]
  - MENTAL STATUS CHANGES [None]
  - FATIGUE [None]
  - RENAL FAILURE ACUTE [None]
  - METASTASES TO BONE [None]
  - ORAL CANDIDIASIS [None]
  - PAIN [None]
  - BREATH ODOUR [None]
  - CHILLS [None]
  - BONE DISORDER [None]
  - BARRETT'S OESOPHAGUS [None]
  - LOCAL SWELLING [None]
  - MOOD DISORDER DUE TO A GENERAL MEDICAL CONDITION [None]
  - TENDONITIS [None]
  - OVARIAN CYST [None]
  - OSTEOPENIA [None]
  - DRUG DEPENDENCE [None]
  - HUMAN EHRLICHIOSIS [None]
  - GENERALISED ANXIETY DISORDER [None]
  - HEPATIC STEATOSIS [None]
  - GASTRITIS [None]
  - DUODENITIS [None]
  - DIZZINESS [None]
  - DIABETES MELLITUS [None]
  - CHRONIC SINUSITIS [None]
  - AGITATION [None]
  - BREAST CANCER METASTATIC [None]
  - CHEST PAIN [None]
  - CHRONIC OBSTRUCTIVE PULMONARY DISEASE [None]
  - FEBRILE NEUTROPENIA [None]
  - NECK PAIN [None]
  - LACUNAR INFARCTION [None]
  - STOMATITIS [None]
  - HYPERTENSION [None]
  - JAW FRACTURE [None]
  - FRACTURE [None]
  - DIARRHOEA [None]
  - CHOLECYSTITIS [None]
  - CORONARY ARTERY DISEASE [None]
  - BONE MARROW FAILURE [None]
  - MUSCULOSKELETAL PAIN [None]
  - TOOTH LOSS [None]
  - ADVERSE EVENT [None]
  - PNEUMONIA PRIMARY ATYPICAL [None]
  - HYPERLIPIDAEMIA [None]
  - CARDIAC FAILURE CONGESTIVE [None]
  - ADRENAL ADENOMA [None]
  - EXOSTOSIS [None]
  - ROAD TRAFFIC ACCIDENT [None]
  - SPINAL COLUMN STENOSIS [None]
  - DENTAL CARIES [None]
  - CONSTIPATION [None]
